FAERS Safety Report 6260428-4 (Version None)
Quarter: 2009Q3

REPORT INFORMATION
  Report Type: 
  Country: None (occurrence: None)
  Receive Date: 20090708
  Receipt Date: 20090702
  Transmission Date: 20100115
  Serious: Yes (Hospitalization)
  Sender: FDA-Public Use
  Company Number: FR-BRISTOL-MYERS SQUIBB COMPANY-14692289

PATIENT
  Age: 72 Year
  Sex: Male
  Weight: 69 kg

DRUGS (3)
  1. IRBESARTAN AND HYDROCHLOROTHIAZIDE [Suspect]
     Dosage: 1DF-150MG + 12.5 MG
     Route: 048
  2. METHOTREXATE [Suspect]
     Indication: CENTRAL NERVOUS SYSTEM LYMPHOMA
     Dosage: FORM: SOLUTION; FIRST INF-7APR09 SECOND INF-29APR09 THIRD INF-13MAY09 DURATION -2HRS:5WEEK 3DAYS
     Route: 041
     Dates: start: 20090513, end: 20090513
  3. NEURONTIN [Suspect]
     Indication: NEURALGIA
     Dosage: FORM: CAPSULE
     Route: 048

REACTIONS (2)
  - DRUG LEVEL INCREASED [None]
  - RENAL FAILURE [None]
